FAERS Safety Report 12085978 (Version 2)
Quarter: 2016Q2

REPORT INFORMATION
  Report Type: Report from Study
  Country: US (occurrence: US)
  Receive Date: 20160217
  Receipt Date: 20160411
  Transmission Date: 20160815
  Serious: Yes (Hospitalization)
  Sender: FDA-Public Use
  Company Number: US-GILEAD-2016-0198481

PATIENT
  Age: 72 Year
  Sex: Male

DRUGS (1)
  1. LEDIPASVIR/SOFOSBUVIR [Suspect]
     Active Substance: LEDIPASVIR\SOFOSBUVIR
     Indication: HEPATITIS C
     Dosage: 1 DF, QD
     Route: 048
     Dates: start: 20150130, end: 20150423

REACTIONS (8)
  - Feeling abnormal [Unknown]
  - Anaemia [Recovering/Resolving]
  - Asthenia [Unknown]
  - Headache [Unknown]
  - Bradycardia [Unknown]
  - Fatigue [Unknown]
  - Memory impairment [Unknown]
  - Vertigo [Unknown]
